FAERS Safety Report 8077648-9 (Version None)
Quarter: 2012Q1

REPORT INFORMATION
  Report Type: 
  Country: None (occurrence: None)
  Receive Date: 20120127
  Receipt Date: 20120123
  Transmission Date: 20120608
  Serious: No
  Sender: FDA-Public Use
  Company Number: US-B.I. PHARMACEUTICALS,INC./RIDGEFIELD-2012-BP-01390BP

PATIENT
  Sex: Female

DRUGS (2)
  1. ZANTAC [Suspect]
     Indication: DYSPEPSIA
     Route: 048
     Dates: start: 20120116, end: 20120119
  2. CITALOPRAM HYDROBROMIDE [Concomitant]
     Indication: DEPRESSION
     Route: 048
     Dates: start: 20110701

REACTIONS (3)
  - PRURITUS GENERALISED [None]
  - SWELLING [None]
  - RASH GENERALISED [None]
